FAERS Safety Report 4921995-3 (Version None)
Quarter: 2006Q1

REPORT INFORMATION
  Report Type: 
  Country: None (occurrence: None)
  Receive Date: 20060224
  Receipt Date: 20060217
  Transmission Date: 20060701
  Serious: Yes (Other)
  Sender: FDA-Public Use
  Company Number: GB-AVENTIS-200611508GDDC

PATIENT
  Age: 37 Year
  Sex: Female
  Weight: 62 kg

DRUGS (2)
  1. LANTUS [Suspect]
     Indication: DIABETES MELLITUS
     Dosage: DOSE UNIT: UNITS
     Route: 058
     Dates: start: 20050417, end: 20050811
  2. NOVORAPID [Concomitant]
     Dosage: DOSE UNIT: UNITS
     Route: 058
     Dates: start: 20030917

REACTIONS (2)
  - DEPERSONALISATION [None]
  - DEPRESSION [None]
